FAERS Safety Report 5397149-6 (Version None)
Quarter: 2007Q3

REPORT INFORMATION
  Report Type: 
  Country: None (occurrence: None)
  Receive Date: 20070725
  Receipt Date: 20070714
  Transmission Date: 20080115
  Serious: Yes (Hospitalization, Other)
  Sender: FDA-Public Use
  Company Number: US-PFIZER INC-2007051975

PATIENT
  Sex: Male

DRUGS (14)
  1. LYRICA [Suspect]
     Indication: DIABETIC NEUROPATHY
  2. LYRICA [Suspect]
     Indication: NEUROPATHY PERIPHERAL
  3. LIPITOR [Suspect]
  4. LESCOL XL [Concomitant]
     Route: 048
  5. ASPIRIN [Concomitant]
  6. VIAGRA [Concomitant]
     Route: 048
  7. TRICOR [Concomitant]
     Route: 048
  8. ACTOS [Concomitant]
     Route: 048
  9. BYETTA [Concomitant]
     Route: 058
  10. OMACOR [Concomitant]
     Route: 048
  11. INSULIN [Concomitant]
     Dosage: TEXT:30 UNITS TWO TIMES DAILY
  12. CYMBALTA [Concomitant]
     Route: 048
  13. LANTUS [Concomitant]
  14. LEXAPRO [Concomitant]

REACTIONS (32)
  - ABDOMINAL PAIN [None]
  - ADVERSE DRUG REACTION [None]
  - ANAL HAEMORRHAGE [None]
  - ANXIETY [None]
  - BLOOD UREA INCREASED [None]
  - CONFUSIONAL STATE [None]
  - DELUSION [None]
  - DEPRESSED LEVEL OF CONSCIOUSNESS [None]
  - DEPRESSION [None]
  - DIABETES MELLITUS [None]
  - DIABETES MELLITUS INADEQUATE CONTROL [None]
  - DIABETIC NEPHROPATHY [None]
  - DISORIENTATION [None]
  - DYSARTHRIA [None]
  - FATIGUE [None]
  - GASTROINTESTINAL HAEMORRHAGE [None]
  - GLYCOSYLATED HAEMOGLOBIN INCREASED [None]
  - HAEMORRHOIDS [None]
  - HEPATIC STEATOSIS [None]
  - HYPERLIPIDAEMIA [None]
  - HYPERTENSION [None]
  - HYPERURICAEMIA [None]
  - INSOMNIA [None]
  - LOCALISED INTRAABDOMINAL FLUID COLLECTION [None]
  - MYALGIA [None]
  - NEUROPATHY PERIPHERAL [None]
  - OCCULT BLOOD POSITIVE [None]
  - ORGANIC ERECTILE DYSFUNCTION [None]
  - PROTEINURIA [None]
  - THINKING ABNORMAL [None]
  - WAIST CIRCUMFERENCE INCREASED [None]
  - WHITE BLOOD CELL COUNT DECREASED [None]
